FAERS Safety Report 20511018 (Version 2)
Quarter: 2022Q1

REPORT INFORMATION
  Report Type: Report from Study
  Country: US (occurrence: US)
  Receive Date: 20220224
  Receipt Date: 20220310
  Transmission Date: 20220423
  Serious: No
  Sender: FDA-Public Use
  Company Number: US-NOVARTISTESTPH-NVSC2022US042525

PATIENT
  Sex: Male

DRUGS (1)
  1. ENTRESTO [Suspect]
     Active Substance: SACUBITRIL\VALSARTAN
     Indication: Cardiac failure
     Dosage: UNK UNK, BID, (49/51MG)
     Route: 048
     Dates: start: 202201

REACTIONS (5)
  - Blood pressure increased [Unknown]
  - Stress [Unknown]
  - Weight decreased [Unknown]
  - Heart rate increased [Unknown]
  - Cough [Unknown]
